FAERS Safety Report 15757937 (Version 1)
Quarter: 2018Q4

REPORT INFORMATION
  Report Type: Report from Study
  Country: ES (occurrence: ES)
  Receive Date: 20181225
  Receipt Date: 20181225
  Transmission Date: 20190205
  Serious: Yes (Hospitalization, Disabling)
  Sender: FDA-Public Use
  Company Number: ES-ACCORD-097589

PATIENT
  Age: 61 Year
  Sex: Female

DRUGS (4)
  1. EPIRUBICIN [Interacting]
     Active Substance: EPIRUBICIN
     Indication: BREAST CANCER
     Route: 042
  2. CYCLOPHOSPHAMIDE/CYCLOPHOSPHAMIDE MONOHYDRATE [Interacting]
     Active Substance: CYCLOPHOSPHAMIDE
     Indication: BREAST CANCER
     Dosage: SP 4 CICLOS
     Route: 042
  3. LOXIFAN [Interacting]
     Active Substance: LETROZOLE
     Indication: BREAST CANCER
     Dosage: 1 CP
     Route: 048
  4. DOCETAXEL. [Suspect]
     Active Substance: DOCETAXEL
     Indication: BREAST CANCER
     Dosage: SP 4 CICLOS
     Route: 042

REACTIONS (2)
  - Left ventricular dysfunction [Recovered/Resolved with Sequelae]
  - Drug interaction [Unknown]

NARRATIVE: CASE EVENT DATE: 20120419
